FAERS Safety Report 12456230 (Version 3)
Quarter: 2016Q3

REPORT INFORMATION
  Report Type: Spontaneous
  Country: US (occurrence: US)
  Receive Date: 20160610
  Receipt Date: 20160906
  Transmission Date: 20161109
  Serious: No
  Sender: FDA-Public Use
  Company Number: US-SA-2016SA107235

PATIENT
  Age: 82 Year
  Sex: Female
  Weight: 88.45 kg

DRUGS (2)
  1. LANTUS SOLOSTAR [Suspect]
     Active Substance: INSULIN GLARGINE
     Indication: TYPE 2 DIABETES MELLITUS
     Dosage: DOSE:80 UNIT(S)
     Route: 065
     Dates: start: 2006
  2. SOLOSTAR [Concomitant]
     Active Substance: DEVICE
     Dates: start: 2006

REACTIONS (1)
  - Product use issue [Unknown]
